FAERS Safety Report 10668300 (Version 5)
Quarter: 2017Q4

REPORT INFORMATION
  Report Type: Spontaneous
  Country: US (occurrence: US)
  Receive Date: 20141222
  Receipt Date: 20171116
  Transmission Date: 20180320
  Serious: Yes (Other)
  Sender: FDA-Public Use
  Company Number: US-BAYER-2014-185312

PATIENT
  Sex: Male

DRUGS (2)
  1. KOGENATE FS [Suspect]
     Active Substance: ANTIHEMOPHILIC FACTOR, HUMAN RECOMBINANT
     Indication: FACTOR VIII DEFICIENCY
     Dosage: 2300 IU, BIW
     Route: 042
     Dates: start: 20031111
  2. KOGENATE FS [Suspect]
     Active Substance: ANTIHEMOPHILIC FACTOR, HUMAN RECOMBINANT
     Indication: FACTOR VIII DEFICIENCY
     Dosage: 2300 UNITS, PRN AS NEEDED FOR BLEEDING
     Route: 042
     Dates: start: 20170906

REACTIONS (4)
  - Haemarthrosis [None]
  - Muscle haemorrhage [None]
  - Mouth haemorrhage [None]
  - Haemarthrosis [Recovered/Resolved]
